FAERS Safety Report 5755363-1 (Version None)
Quarter: 2008Q2

REPORT INFORMATION
  Report Type: 
  Country: None (occurrence: None)
  Receive Date: 20080529
  Receipt Date: 20080529
  Transmission Date: 20081010
  Serious: Yes (Disabling)
  Sender: FDA-Public Use
  Company Number: None

PATIENT
  Age: 25 Year
  Sex: Female
  Weight: 58.9676 kg

DRUGS (2)
  1. CREST PRO-HEALTH [Suspect]
     Dosage: ONE CAP ONCE A DAY PO
     Route: 048
     Dates: start: 20050529, end: 20050820
  2. COLGATE [Concomitant]

REACTIONS (1)
  - TOOTH DISCOLOURATION [None]
